FAERS Safety Report 21996081 (Version 1)
Quarter: 2023Q1

REPORT INFORMATION
  Report Type: Spontaneous
  Country: US (occurrence: US)
  Receive Date: 20230215
  Receipt Date: 20230215
  Transmission Date: 20230417
  Serious: No
  Sender: FDA-Public Use
  Company Number: US-Millicent Holdings Ltd.-MILL20230043

PATIENT
  Age: 70 Year
  Sex: Female

DRUGS (1)
  1. FEMRING [Suspect]
     Active Substance: ESTRADIOL ACETATE
     Indication: Product used for unknown indication
     Dosage: 0.05 MG/DAY
     Route: 067

REACTIONS (6)
  - Device expulsion [Recovered/Resolved]
  - Product dose omission issue [Not Recovered/Not Resolved]
  - Device dislocation [Recovered/Resolved]
  - Device difficult to use [None]
  - Product physical issue [None]
  - Suspected product quality issue [None]

NARRATIVE: CASE EVENT DATE: 20230205
